FAERS Safety Report 21838250 (Version 1)
Quarter: 2023Q1

REPORT INFORMATION
  Report Type: Spontaneous
  Country: US (occurrence: None)
  Receive Date: 20230107
  Receipt Date: 20230107
  Transmission Date: 20230418
  Serious: Yes (Hospitalization)
  Sender: FDA-Public Use
  Company Number: None

PATIENT
  Age: 64 Year
  Sex: Female
  Weight: 53.1 kg

DRUGS (9)
  1. RECLAST [Suspect]
     Active Substance: ZOLEDRONIC ACID
     Indication: Osteoporosis
  2. ATENOLOL [Concomitant]
     Active Substance: ATENOLOL
  3. hydrochloride thiozide [Concomitant]
  4. METAMUCIL [Concomitant]
     Active Substance: PLANTAGO SEED
  5. ASPIRIN [Concomitant]
     Active Substance: ASPIRIN
  6. potassium cit [Concomitant]
  7. COLESTIPOL [Concomitant]
     Active Substance: COLESTIPOL
  8. VITAMIN D3 [Concomitant]
     Active Substance: CHOLECALCIFEROL
  9. vlregilar vitamin for women over 60 [Concomitant]

REACTIONS (9)
  - Nausea [None]
  - Pain [None]
  - Back pain [None]
  - Influenza like illness [None]
  - Headache [None]
  - Vomiting [None]
  - Pain in extremity [None]
  - Gait disturbance [None]
  - Drug hypersensitivity [None]

NARRATIVE: CASE EVENT DATE: 20230104
